FAERS Safety Report 11615892 (Version 1)
Quarter: 2015Q4

REPORT INFORMATION
  Report Type: Spontaneous
  Country: US (occurrence: None)
  Receive Date: 20151008
  Receipt Date: 20151008
  Transmission Date: 20160304
  Serious: Yes (Life-Threatening, Hospitalization)
  Sender: FDA-Public Use
  Company Number: None

PATIENT
  Sex: Male

DRUGS (7)
  1. THEOPHILINE [Concomitant]
  2. ATENOLOL. [Concomitant]
     Active Substance: ATENOLOL
  3. XOLAIR [Suspect]
     Active Substance: OMALIZUMAB
     Indication: ASTHMA
     Dosage: CAMEIN POWDER FOR DOCTORS OFFICE MIXED DOSAGE FOR SHOT?SHOTS IN FOREARMS; 2 SHOTS
     Dates: start: 2015, end: 20150805
  4. SINGULAIR [Concomitant]
     Active Substance: MONTELUKAST SODIUM
  5. QVAR [Concomitant]
     Active Substance: BECLOMETHASONE DIPROPIONATE
  6. LEXAPRO [Concomitant]
     Active Substance: ESCITALOPRAM OXALATE
  7. ASPIRIN. [Concomitant]
     Active Substance: ASPIRIN

REACTIONS (3)
  - Hypertension [None]
  - Post procedural complication [None]
  - Coronary artery occlusion [None]

NARRATIVE: CASE EVENT DATE: 20150623
